FAERS Safety Report 15470735 (Version 1)
Quarter: 2018Q4

REPORT INFORMATION
  Report Type: Spontaneous
  Country: CH (occurrence: CH)
  Receive Date: 20181005
  Receipt Date: 20181005
  Transmission Date: 20190205
  Serious: Yes (Other)
  Sender: FDA-Public Use
  Company Number: CH-GILEAD-2018-0366447

PATIENT
  Sex: Female

DRUGS (3)
  1. ZYDELIG [Suspect]
     Active Substance: IDELALISIB
     Indication: CHRONIC LYMPHOCYTIC LEUKAEMIA
     Dosage: CONTINUATION AT THE STANDARD DOSES
     Route: 065
     Dates: start: 201606
  2. ZYDELIG [Suspect]
     Active Substance: IDELALISIB
     Dosage: THERAPY AS 4TH LINE
     Route: 065
  3. RITUXIMAB. [Concomitant]
     Active Substance: RITUXIMAB
     Indication: CHRONIC LYMPHOCYTIC LEUKAEMIA
     Dosage: THERAPY AS 4TH LINE
     Route: 065

REACTIONS (1)
  - Disease progression [Unknown]
